FAERS Safety Report 9130110 (Version 1)
Quarter: 2013Q1

REPORT INFORMATION
  Report Type: Spontaneous
  Country: PL (occurrence: PL)
  Receive Date: 20130228
  Receipt Date: 20130228
  Transmission Date: 20140127
  Serious: Yes (Other)
  Sender: FDA-Public Use
  Company Number: PL-BAXTER-2013BAX006927

PATIENT
  Age: 63 Year
  Sex: Female

DRUGS (1)
  1. ENDOXAN [Suspect]
     Indication: ACQUIRED HAEMOPHILIA
     Route: 065

REACTIONS (1)
  - Drug ineffective [Not Recovered/Not Resolved]
